FAERS Safety Report 9644871 (Version 15)
Quarter: 2016Q2

REPORT INFORMATION
  Report Type: Report from Study
  Country: CA (occurrence: CA)
  Receive Date: 20131025
  Receipt Date: 20160615
  Transmission Date: 20160815
  Serious: Yes (Hospitalization, Other)
  Sender: FDA-Public Use
  Company Number: PHHY2012CA028705

PATIENT
  Age: 74 Year
  Sex: Female

DRUGS (3)
  1. SANDOSTATIN LAR DEPOT [Suspect]
     Active Substance: OCTREOTIDE ACETATE
     Dosage: 30 MG, QMO ONCE A MONTH
     Route: 030
  2. SANDOSTATIN LAR DEPOT [Suspect]
     Active Substance: OCTREOTIDE ACETATE
     Dosage: 30 MG, QMO EVERY 4 WEEKS
     Route: 030
  3. SANDOSTATIN LAR DEPOT [Suspect]
     Active Substance: OCTREOTIDE ACETATE
     Indication: METASTATIC CARCINOID TUMOUR
     Dosage: 30 MG, QMO (EVERY 4 WEEKS)
     Route: 030
     Dates: start: 20120203

REACTIONS (27)
  - Pain in extremity [Unknown]
  - Dyspnoea [Unknown]
  - Pulse abnormal [Unknown]
  - Blood pressure diastolic decreased [Unknown]
  - Fibromyalgia [Unknown]
  - Feeling hot [Unknown]
  - Blood pressure increased [Unknown]
  - Sleep apnoea syndrome [Unknown]
  - Sciatica [Unknown]
  - Oedema [Unknown]
  - Dizziness [Unknown]
  - Cerebrovascular accident [Unknown]
  - Joint swelling [Unknown]
  - Rash pruritic [Recovered/Resolved]
  - Fatigue [Unknown]
  - Syncope [Unknown]
  - Nervousness [Unknown]
  - Feeling abnormal [Unknown]
  - Heart rate irregular [Unknown]
  - Hypotension [Unknown]
  - Stress [Unknown]
  - Palpitations [Recovered/Resolved]
  - Arthritis [Unknown]
  - Arthralgia [Unknown]
  - Rash [Unknown]
  - Heart rate decreased [Unknown]
  - Malaise [Unknown]

NARRATIVE: CASE EVENT DATE: 20120420
